FAERS Safety Report 24423740 (Version 1)
Quarter: 2024Q4

REPORT INFORMATION
  Report Type: Spontaneous
  Country: US (occurrence: US)
  Receive Date: 20241010
  Receipt Date: 20241010
  Transmission Date: 20250115
  Serious: No
  Sender: FRESENIUS KABI
  Company Number: US-FreseniusKabi-FK202414855

PATIENT

DRUGS (1)
  1. PROPOFOL [Suspect]
     Active Substance: PROPOFOL
     Indication: Product used for unknown indication
     Dosage: HIGH DOSE PROPOFOL FOR ABOUT 5 DAYS?FORM OF ADMINISTRATION: INFUSION

REACTIONS (3)
  - Zinc deficiency [Unknown]
  - Asthenia [Unknown]
  - Peroneal nerve palsy [Unknown]
